FAERS Safety Report 10811467 (Version 1)
Quarter: 2015Q1

REPORT INFORMATION
  Report Type: Report from Study
  Country: US (occurrence: US)
  Receive Date: 20150217
  Receipt Date: 20150217
  Transmission Date: 20150721
  Serious: No
  Sender: FDA-Public Use
  Company Number: US-ABBVIE-14K-163-1216860-00

PATIENT
  Age: 28 Year
  Sex: Male

DRUGS (1)
  1. HUMIRA [Suspect]
     Active Substance: ADALIMUMAB
     Indication: COLITIS ULCERATIVE
     Dates: start: 20121205

REACTIONS (6)
  - Colitis ulcerative [Recovering/Resolving]
  - Viral infection [Recovered/Resolved]
  - Haemorrhage [Unknown]
  - Muscle spasms [Unknown]
  - Malaise [Unknown]
  - Inflammation [Unknown]

NARRATIVE: CASE EVENT DATE: 2014
